FAERS Safety Report 25760899 (Version 1)
Quarter: 2025Q3

REPORT INFORMATION
  Report Type: Spontaneous
  Country: US (occurrence: US)
  Receive Date: 20250904
  Receipt Date: 20250904
  Transmission Date: 20251020
  Serious: Yes (Other)
  Sender: SANOFI AVENTIS
  Company Number: US-SA-2025SA264174

PATIENT
  Sex: Female
  Weight: 92.9 kg

DRUGS (13)
  1. DUPIXENT [Suspect]
     Active Substance: DUPILUMAB
     Indication: Dermatitis
     Dosage: 300 MG, QOW
     Route: 058
  2. ALBUTEROL SULFATE [Concomitant]
     Active Substance: ALBUTEROL SULFATE
  3. COLLAGEN [Concomitant]
     Active Substance: COLLAGEN
  4. NALOXONE HCL [Concomitant]
     Active Substance: NALOXONE HYDROCHLORIDE
  5. POLYETHYLENE GLYCOL [Concomitant]
     Active Substance: POLYETHYLENE GLYCOL
  6. ONDANSETRON HYDROCHLORIDE [Concomitant]
     Active Substance: ONDANSETRON HYDROCHLORIDE
  7. LANSOPRAZOLE [Concomitant]
     Active Substance: LANSOPRAZOLE
  8. OXYCODONE HYDROCHLORIDE [Concomitant]
     Active Substance: OXYCODONE HYDROCHLORIDE
  9. GABAPENTIN [Concomitant]
     Active Substance: GABAPENTIN
  10. TYLENOL [Concomitant]
     Active Substance: ACETAMINOPHEN
  11. IBUPROFEN [Concomitant]
     Active Substance: IBUPROFEN
  12. METFORMIN HYDROCHLORIDE [Concomitant]
     Active Substance: METFORMIN HYDROCHLORIDE
  13. NONI JUICE [Concomitant]
     Active Substance: NONI FRUIT JUICE

REACTIONS (2)
  - Neoplasm malignant [Recovered/Resolved]
  - Product use in unapproved indication [Unknown]
